FAERS Safety Report 6343349-8 (Version None)
Quarter: 2009Q3

REPORT INFORMATION
  Report Type: 
  Country: None (occurrence: None)
  Receive Date: 20090908
  Receipt Date: 20090831
  Transmission Date: 20100115
  Serious: Yes (Other)
  Sender: FDA-Public Use
  Company Number: PHEH2009US10152

PATIENT
  Sex: Female

DRUGS (2)
  1. RECLAST [Suspect]
     Dosage: UNK
     Dates: start: 20090828, end: 20090828
  2. PRAVASTATIN [Concomitant]

REACTIONS (5)
  - CHEST PAIN [None]
  - HEADACHE [None]
  - HYPOTENSION [None]
  - MIGRAINE [None]
  - PYREXIA [None]
